FAERS Safety Report 5598010-4 (Version None)
Quarter: 2008Q1

REPORT INFORMATION
  Report Type: 
  Country: None (occurrence: None)
  Receive Date: 20080122
  Receipt Date: 20080110
  Transmission Date: 20080703
  Serious: Yes (Hospitalization)
  Sender: FDA-Public Use
  Company Number: US-JNJFOC-20080102698

PATIENT
  Sex: Male

DRUGS (2)
  1. TYLENOL COLD MULTI-SYMPTOM DAYTIME COOL BURST [Suspect]
     Indication: NASOPHARYNGITIS
     Dosage: 2 DOSES EVERY 4 HOURS FOR 2-3 DAYS
  2. VITAMINS [Concomitant]
     Indication: GENERAL PHYSICAL CONDITION

REACTIONS (1)
  - CONVULSION [None]
